FAERS Safety Report 15627442 (Version 1)
Quarter: 2018Q4

REPORT INFORMATION
  Report Type: Spontaneous
  Country: US (occurrence: US)
  Receive Date: 20181116
  Receipt Date: 20181116
  Transmission Date: 20190205
  Serious: No
  Sender: FDA-Public Use
  Company Number: None

PATIENT
  Age: 37 Year
  Sex: Female
  Weight: 127.35 kg

DRUGS (17)
  1. OCREVUS [Concomitant]
     Active Substance: OCRELIZUMAB
  2. KEPPRA [Concomitant]
     Active Substance: LEVETIRACETAM
  3. PHILLIPS COLON HEALTH [Concomitant]
  4. RANITIDINE. [Concomitant]
     Active Substance: RANITIDINE
  5. VIT B2 [Concomitant]
  6. ZYRTEC [Concomitant]
     Active Substance: CETIRIZINE HYDROCHLORIDE
  7. PRISTIQ EXTENDED-RELEASE [Concomitant]
     Active Substance: DESVENLAFAXINE SUCCINATE
  8. MULTI VITAMINS [Concomitant]
     Active Substance: VITAMINS
  9. AIMOVIG [Suspect]
     Active Substance: ERENUMAB-AOOE
     Indication: MIGRAINE PROPHYLAXIS
     Dosage: ?          QUANTITY:1 INJECTION(S);OTHER FREQUENCY:MONTHLY;?
     Route: 058
     Dates: start: 20180820
  10. METOPROLOL ER SUCCINATE [Concomitant]
     Active Substance: METOPROLOL SUCCINATE
  11. BUPROPION. [Concomitant]
     Active Substance: BUPROPION
  12. VITAMIN D3 [Concomitant]
     Active Substance: CHOLECALCIFEROL
  13. MIRENA [Concomitant]
     Active Substance: LEVONORGESTREL
  14. MAGNESIUM [Concomitant]
     Active Substance: MAGNESIUM
  15. CARBAMAZEPINE. [Concomitant]
     Active Substance: CARBAMAZEPINE
  16. GABAPENTIN. [Concomitant]
     Active Substance: GABAPENTIN
  17. DEPAKOTE [Concomitant]
     Active Substance: DIVALPROEX SODIUM

REACTIONS (4)
  - Musculoskeletal pain [None]
  - Pain in jaw [None]
  - Pain [None]
  - Pain in extremity [None]

NARRATIVE: CASE EVENT DATE: 20180929
